FAERS Safety Report 22209380 (Version 1)
Quarter: 2023Q2

REPORT INFORMATION
  Report Type: Spontaneous
  Country: US (occurrence: US)
  Receive Date: 20230413
  Receipt Date: 20230413
  Transmission Date: 20230721
  Serious: No
  Sender: FDA-Public Use
  Company Number: US-009507513-2304USA002684

PATIENT
  Sex: Female

DRUGS (1)
  1. JANUVIA [Suspect]
     Active Substance: SITAGLIPTIN PHOSPHATE
     Dosage: 50MG/ONCE A DAY
     Route: 048

REACTIONS (3)
  - Blood glucose abnormal [Unknown]
  - Product use issue [Unknown]
  - Product dose omission issue [Unknown]
